FAERS Safety Report 6439485-8 (Version None)
Quarter: 2009Q4

REPORT INFORMATION
  Report Type: 
  Country: None (occurrence: None)
  Receive Date: 20091113
  Receipt Date: 20091103
  Transmission Date: 20100525
  Serious: Yes (Hospitalization)
  Sender: FDA-Public Use
  Company Number: GB-ABBOTT-07P-167-0355736-00

PATIENT
  Age: 53 Year
  Sex: Female

DRUGS (4)
  1. NORVIR [Suspect]
     Indication: DRUG USE FOR UNKNOWN INDICATION
     Route: 048
     Dates: start: 20060701
  2. REYATAZ [Suspect]
     Indication: HIV INFECTION
     Dates: start: 20060701
  3. CO-TRIMOXAZOLE [Suspect]
     Indication: DRUG USE FOR UNKNOWN INDICATION
     Route: 065
     Dates: start: 20060701
  4. KIVEXA [Suspect]
     Indication: HIV INFECTION
     Dates: start: 20060701

REACTIONS (1)
  - CARDIOMYOPATHY [None]
